FAERS Safety Report 17062215 (Version 2)
Quarter: 2019Q4

REPORT INFORMATION
  Report Type: Report from Study
  Country: None (occurrence: GB)
  Receive Date: 20191122
  Receipt Date: 20191223
  Transmission Date: 20200122
  Serious: Yes (Other)
  Sender: FDA-Public Use
  Company Number: GB-ABBVIE-19K-167-3011555-00

PATIENT
  Age: 74 Year
  Sex: Male

DRUGS (1)
  1. DUODOPA [Suspect]
     Active Substance: CARBIDOPA\LEVODOPA
     Indication: PARKINSON^S DISEASE
     Dosage: 100ML CASSETTE DAILY??5MG/1ML??20MG/1ML
     Route: 050

REACTIONS (4)
  - Stoma site infection [Recovering/Resolving]
  - Stoma site haemorrhage [Recovering/Resolving]
  - Embedded device [Unknown]
  - Stoma site discharge [Recovering/Resolving]

NARRATIVE: CASE EVENT DATE: 201911
